FAERS Safety Report 10717667 (Version 2)
Quarter: 2016Q3

REPORT INFORMATION
  Report Type: Spontaneous
  Country: DK (occurrence: DK)
  Receive Date: 20150116
  Receipt Date: 20160921
  Transmission Date: 20161109
  Serious: Yes (Hospitalization)
  Sender: FDA-Public Use
  Company Number: PHHY2015DK001454

PATIENT
  Sex: Female

DRUGS (7)
  1. LYSANTIN [Suspect]
     Active Substance: ORPHENADRINE HYDROCHLORIDE
     Indication: PRODUCT USED FOR UNKNOWN INDICATION
     Dosage: 50 MG, UNK
     Route: 048
     Dates: start: 20120309
  2. LYSANTIN [Suspect]
     Active Substance: ORPHENADRINE HYDROCHLORIDE
     Dosage: STYRKE: 50 MG.
     Route: 048
     Dates: start: 20120309
  3. TRUXAL [Suspect]
     Active Substance: CHLORPROTHIXENE
     Indication: RESTLESSNESS
     Dosage: 25 MG (25 MG MAX 2 GANGE DAGLIG)
     Route: 048
     Dates: end: 20120316
  4. SERTRALIN KRKA//SERTRALINE [Suspect]
     Active Substance: SERTRALINE HYDROCHLORIDE
     Indication: ANXIETY
     Dosage: 50 MG, QD
     Route: 048
  5. CITALOPRAM [Suspect]
     Active Substance: CITALOPRAM HYDROBROMIDE
     Indication: PRODUCT USED FOR UNKNOWN INDICATION
     Route: 048
     Dates: start: 2012, end: 2012
  6. SEROQUEL [Suspect]
     Active Substance: QUETIAPINE FUMARATE
     Indication: MENTAL DISORDER
     Route: 048
     Dates: start: 20120316
  7. RISPERDAL [Suspect]
     Active Substance: RISPERIDONE
     Indication: MENTAL DISORDER
     Route: 048
     Dates: end: 20120309

REACTIONS (3)
  - Pain in jaw [Recovered/Resolved]
  - Oromandibular dystonia [Recovering/Resolving]
  - Dyskinesia [Recovered/Resolved]
